FAERS Safety Report 10301953 (Version 6)
Quarter: 2015Q2

REPORT INFORMATION
  Report Type: Report from Study
  Country: CA (occurrence: CA)
  Receive Date: 20140714
  Receipt Date: 20150605
  Transmission Date: 20150821
  Serious: Yes (Death, Life-Threatening, Hospitalization)
  Sender: FDA-Public Use
  Company Number: CA-TEVA-494012USA

PATIENT
  Age: 77 Year
  Sex: Male

DRUGS (32)
  1. SYMBICORT [Concomitant]
     Active Substance: BUDESONIDE\FORMOTEROL FUMARATE DIHYDRATE
     Dosage: 4 PUFFS UNKNOWN FREQ
     Route: 045
     Dates: start: 20140526
  2. BENDAMUSTINE HYDROCHLORIDE [Suspect]
     Active Substance: BENDAMUSTINE HYDROCHLORIDE
     Dosage: 70 MG/M2, ONCE DAILY (C1D2)
     Route: 042
     Dates: start: 20140604, end: 20140604
  3. OBINUTUZUMAB [Suspect]
     Active Substance: OBINUTUZUMAB
     Dosage: 1000 MG, ONCE DAILY (C1D15)
     Route: 042
     Dates: start: 20140617, end: 20140617
  4. LANSOPRAZOLE. [Concomitant]
     Active Substance: LANSOPRAZOLE
     Dosage: 30 MG, ONCE A DAY
     Route: 048
     Dates: start: 20140526
  5. BENADRYL [Concomitant]
     Active Substance: DIPHENHYDRAMINE HYDROCHLORIDE
     Indication: PROPHYLAXIS
     Dosage: 50MG PRE GA101
     Route: 042
     Dates: start: 20140603, end: 20140617
  6. TYLENOL [Concomitant]
     Active Substance: ACETAMINOPHEN
     Indication: PROPHYLAXIS
     Dosage: 650MG 30 MINS PRE GA101
     Route: 048
     Dates: start: 20140603, end: 20140617
  7. TYLENOL [Concomitant]
     Active Substance: ACETAMINOPHEN
     Dosage: 1000 MG, 1 IN 1 AS REQUIRED.
     Route: 048
     Dates: start: 1994
  8. GRAVOL [Concomitant]
     Active Substance: DIMENHYDRINATE
     Indication: PRODUCT USED FOR UNKNOWN INDICATION
     Route: 048
     Dates: start: 20140616
  9. ZOFRAN                             /00955301/ [Concomitant]
     Active Substance: ONDANSETRON HYDROCHLORIDE
     Indication: PRODUCT USED FOR UNKNOWN INDICATION
     Dosage: 30 MINS PRE BENDA THEN Q12H X 4 DOSES
     Route: 048
     Dates: start: 20140603, end: 20140604
  10. OBINUTUZUMAB [Suspect]
     Active Substance: OBINUTUZUMAB
     Indication: CHRONIC LYMPHOCYTIC LEUKAEMIA
     Dosage: 25 MG, ONCE DAILY (C1D1)
     Route: 042
     Dates: start: 20140603, end: 20140603
  11. OBINUTUZUMAB [Suspect]
     Active Substance: OBINUTUZUMAB
     Dosage: 975 MG, ONCE DAILY (C1D2)
     Route: 042
     Dates: start: 20140604, end: 20140604
  12. NORMAL SALINE [Suspect]
     Active Substance: SODIUM CHLORIDE
     Indication: CHRONIC LYMPHOCYTIC LEUKAEMIA
     Dosage: 125,UNK, UNKNOWN FREQ.
     Route: 042
     Dates: start: 20140602, end: 20140603
  13. ZOPICLONE [Concomitant]
     Active Substance: ZOPICLONE
     Route: 048
     Dates: start: 2010
  14. ALPRAZOLAM. [Concomitant]
     Active Substance: ALPRAZOLAM
     Indication: PRODUCT USED FOR UNKNOWN INDICATION
     Dosage: 0.25 MG, ONCE DAILY
     Route: 048
     Dates: start: 2010
  15. SEPTRA [Concomitant]
     Active Substance: SULFAMETHOXAZOLE\TRIMETHOPRIM
     Indication: PRODUCT USED FOR UNKNOWN INDICATION
     Dosage: 2 TABS Q MON, WED, FRI
     Route: 048
     Dates: start: 20140603
  16. LEVAQUIN [Concomitant]
     Active Substance: LEVOFLOXACIN
     Indication: PRODUCT USED FOR UNKNOWN INDICATION
     Route: 048
     Dates: start: 20140619
  17. XARELTO [Concomitant]
     Active Substance: RIVAROXABAN
     Indication: PRODUCT USED FOR UNKNOWN INDICATION
     Dosage: DAILY IF PLATELETS ABOVE 100 (20 MG)
     Route: 048
     Dates: start: 20140526, end: 20140606
  18. XARELTO [Concomitant]
     Active Substance: RIVAROXABAN
     Dosage: DAILY IF PLATELETS ABOVE 100 (20 MG)
     Route: 065
     Dates: start: 2004
  19. IMODIUM [Concomitant]
     Active Substance: LOPERAMIDE HYDROCHLORIDE
     Indication: PRODUCT USED FOR UNKNOWN INDICATION
     Route: 048
     Dates: start: 1994
  20. SYMBICORT [Concomitant]
     Active Substance: BUDESONIDE\FORMOTEROL FUMARATE DIHYDRATE
     Indication: PRODUCT USED FOR UNKNOWN INDICATION
     Dosage: 4 PUFFS, THRICE DAILY
     Route: 045
     Dates: start: 2012
  21. LANSOPRAZOLE. [Concomitant]
     Active Substance: LANSOPRAZOLE
     Indication: PRODUCT USED FOR UNKNOWN INDICATION
     Route: 048
     Dates: start: 2004
  22. REACTINE                           /00884302/ [Concomitant]
     Active Substance: CETIRIZINE HYDROCHLORIDE
     Indication: PROPHYLAXIS
     Route: 048
     Dates: start: 20140531, end: 20140603
  23. ALLOPURINOL. [Concomitant]
     Active Substance: ALLOPURINOL
     Indication: PROPHYLAXIS
     Dosage: DAILY; HOLD ON BENDAMUSTINE (300 MG)
     Route: 048
     Dates: start: 20140601, end: 20140607
  24. BENDAMUSTINE HYDROCHLORIDE [Suspect]
     Active Substance: BENDAMUSTINE HYDROCHLORIDE
     Indication: CHRONIC LYMPHOCYTIC LEUKAEMIA
     Dosage: 70 MG/M2, ONCE DAILY (C1D1)
     Route: 042
     Dates: start: 20140603, end: 20140603
  25. ZOPICLONE [Concomitant]
     Active Substance: ZOPICLONE
     Indication: PRODUCT USED FOR UNKNOWN INDICATION
     Route: 065
     Dates: start: 20140526
  26. ACYCLOVIR                          /00587301/ [Concomitant]
     Active Substance: ACYCLOVIR
     Indication: PROPHYLAXIS
     Route: 048
     Dates: start: 20140603
  27. RANITIDINE [Concomitant]
     Active Substance: RANITIDINE\RANITIDINE HYDROCHLORIDE
     Indication: PROPHYLAXIS
     Route: 048
     Dates: start: 20140531, end: 20140603
  28. OBINUTUZUMAB [Suspect]
     Active Substance: OBINUTUZUMAB
     Dosage: 975 MG, ONCE DAILY (C1D8)
     Route: 042
     Dates: start: 20140610, end: 20140610
  29. NORMAL SALINE [Suspect]
     Active Substance: SODIUM CHLORIDE
     Dosage: 250,UNK, UNKNOWN FREQ.
     Route: 042
     Dates: start: 20140605, end: 20140605
  30. ALPRAZOLAM. [Concomitant]
     Active Substance: ALPRAZOLAM
     Dosage: 0.25 MG, UNKNOWN FREQ.
     Route: 065
     Dates: start: 20140526
  31. MAXERAN [Concomitant]
     Active Substance: METOCLOPRAMIDE HYDROCHLORIDE
     Indication: PRODUCT USED FOR UNKNOWN INDICATION
     Route: 048
     Dates: start: 20140617
  32. MONTELUCAST [Concomitant]
     Active Substance: MONTELUKAST SODIUM
     Indication: PROPHYLAXIS
     Route: 048
     Dates: start: 20140531, end: 20140602

REACTIONS (3)
  - Sudden death [Fatal]
  - Pleural effusion [Not Recovered/Not Resolved]
  - Tumour lysis syndrome [Recovered/Resolved]

NARRATIVE: CASE EVENT DATE: 20140605
